FAERS Safety Report 10460940 (Version 4)
Quarter: 2015Q2

REPORT INFORMATION
  Report Type: Report from Study
  Country: GB (occurrence: None)
  Receive Date: 20140911
  Receipt Date: 20150427
  Transmission Date: 20150821
  Serious: Yes (Death, Other)
  Sender: FDA-Public Use
  Company Number: BTG00139

PATIENT
  Age: 93 Year
  Sex: Male

DRUGS (6)
  1. MIRTAZAPINE (MIRTAZAPINE) [Concomitant]
     Active Substance: MIRTAZAPINE
  2. LAXIDO (ELECTROLYTES NOS, MACROGOL 3350) [Concomitant]
     Active Substance: POLYETHYLENE GLYCOL 3350\POTASSIUM CHLORIDE\SODIUM BICARBONATE\SODIUM CHLORIDE
  3. DIGIFAB [Suspect]
     Active Substance: OVINE DIGOXIN IMMUNE FAB
     Indication: TOXICITY TO VARIOUS AGENTS
     Dates: start: 20140531
  4. ASPIRIN (ACETYLSALICYLIC ACID) [Concomitant]
     Active Substance: ASPIRIN
  5. DIGOXIN (DIGOXIN) [Suspect]
     Active Substance: DIGOXIN
     Indication: PRODUCT USED FOR UNKNOWN INDICATION
  6. FUROSEMIDE (FUROSEMIDE) [Concomitant]
     Active Substance: FUROSEMIDE

REACTIONS (9)
  - Confusional state [None]
  - Visual impairment [None]
  - Mental status changes [None]
  - Cardioactive drug level increased [None]
  - Bradycardia [None]
  - Drug ineffective [None]
  - Toxicity to various agents [None]
  - Atrial fibrillation [None]
  - Cardio-respiratory arrest [None]
